FAERS Safety Report 6779903-9 (Version None)
Quarter: 2010Q2

REPORT INFORMATION
  Report Type: 
  Country: None (occurrence: None)
  Receive Date: 20100618
  Receipt Date: 20100615
  Transmission Date: 20101027
  Serious: Yes (Other)
  Sender: FDA-Public Use
  Company Number: CA-MERCK-1006USA02351

PATIENT
  Age: 59 Year
  Sex: Male
  Weight: 104 kg

DRUGS (5)
  1. JANUVIA [Suspect]
     Route: 048
  2. CRESTOR [Concomitant]
     Route: 048
  3. DIOVAN [Concomitant]
     Route: 048
  4. ZETIA [Concomitant]
     Route: 048
  5. METFORMIN [Concomitant]
     Route: 048

REACTIONS (3)
  - DIABETES MELLITUS INADEQUATE CONTROL [None]
  - IMPRISONMENT [None]
  - PHYSICAL ASSAULT [None]
